FAERS Safety Report 5220661-7 (Version None)
Quarter: 2007Q1

REPORT INFORMATION
  Report Type: 
  Country: None (occurrence: None)
  Receive Date: 20070126
  Receipt Date: 20070119
  Transmission Date: 20070707
  Serious: Yes (Other)
  Sender: FDA-Public Use
  Company Number: 2007UW01137

PATIENT
  Age: 84 Year
  Sex: Female

DRUGS (3)
  1. NEXIUM [Suspect]
     Route: 048
  2. CALTRATE D [Concomitant]
  3. HYPERTENSION MEDICATION [Concomitant]

REACTIONS (1)
  - HIP FRACTURE [None]
